FAERS Safety Report 6251676-8 (Version None)
Quarter: 2009Q2

REPORT INFORMATION
  Report Type: 
  Country: None (occurrence: None)
  Receive Date: 20090625
  Receipt Date: 20090625
  Transmission Date: 20091009
  Serious: Yes (Other)
  Sender: FDA-Public Use
  Company Number: None

PATIENT
  Age: 31 Year
  Sex: Female
  Weight: 130.6359 kg

DRUGS (4)
  1. EFFEXOR XR [Suspect]
     Indication: FIBROMYALGIA
     Dosage: 75 MG 1 EACH AM- PO
     Route: 048
     Dates: start: 20090620, end: 20090624
  2. EFFEXOR XR [Suspect]
     Indication: PAIN
     Dosage: 75 MG 1 EACH AM- PO
     Route: 048
     Dates: start: 20090620, end: 20090624
  3. EFFEXOR XR [Suspect]
     Indication: FIBROMYALGIA
     Dosage: 150 MG 1 EACH AM PO
     Route: 048
     Dates: end: 20090620
  4. EFFEXOR XR [Suspect]
     Indication: PAIN
     Dosage: 150 MG 1 EACH AM PO
     Route: 048
     Dates: end: 20090620

REACTIONS (11)
  - COORDINATION ABNORMAL [None]
  - DISTURBANCE IN ATTENTION [None]
  - DIZZINESS [None]
  - FATIGUE [None]
  - FEELING ABNORMAL [None]
  - HEADACHE [None]
  - IMPAIRED WORK ABILITY [None]
  - MALAISE [None]
  - MYALGIA [None]
  - PRURITUS [None]
  - VOMITING [None]
